FAERS Safety Report 22047025 (Version 2)
Quarter: 2023Q1

REPORT INFORMATION
  Report Type: Spontaneous
  Country: US (occurrence: US)
  Receive Date: 20230301
  Receipt Date: 20230331
  Transmission Date: 20230418
  Serious: Yes (Hospitalization)
  Sender: FDA-Public Use
  Company Number: US-TWI PHARMACEUTICAL, INC-2023SCTW000007

PATIENT

DRUGS (4)
  1. DILTIAZEM HYDROCHLORIDE [Suspect]
     Active Substance: DILTIAZEM HYDROCHLORIDE
     Indication: Supraventricular extrasystoles
     Dosage: UNK, OD
     Route: 048
     Dates: start: 20221230, end: 20230117
  2. COREG [Concomitant]
     Active Substance: CARVEDILOL
     Indication: Panic attack
     Dosage: 25 MG, BID
     Route: 065
  3. COREG [Concomitant]
     Active Substance: CARVEDILOL
     Indication: Hypertension
  4. QULIPTA [Concomitant]
     Active Substance: ATOGEPANT
     Indication: Migraine
     Dosage: 50 MG, OD
     Route: 065

REACTIONS (2)
  - Rash pustular [Recovered/Resolved]
  - Skin exfoliation [Recovered/Resolved]

NARRATIVE: CASE EVENT DATE: 20230114
